FAERS Safety Report 25447420 (Version 1)
Quarter: 2025Q2

REPORT INFORMATION
  Report Type: Spontaneous
  Country: NL (occurrence: NL)
  Receive Date: 20250617
  Receipt Date: 20250617
  Transmission Date: 20250716
  Serious: Yes (Death, Hospitalization, Other)
  Sender: BIOVITRUM
  Company Number: NL-BIOVITRUM-2025-NL-008429

PATIENT
  Age: 23 Month
  Sex: Male

DRUGS (3)
  1. ANAKINRA [Suspect]
     Active Substance: ANAKINRA
     Indication: Still^s disease
     Route: 058
  2. ANAKINRA [Suspect]
     Active Substance: ANAKINRA
     Route: 042
  3. ANAKINRA [Suspect]
     Active Substance: ANAKINRA
     Route: 058

REACTIONS (7)
  - Haemophagocytic lymphohistiocytosis [Unknown]
  - Rhinovirus infection [Unknown]
  - Cardiovascular disorder [Unknown]
  - Respiratory disorder [Unknown]
  - Incorrect route of product administration [Unknown]
  - Acute respiratory distress syndrome [Unknown]
  - Multiple organ dysfunction syndrome [Fatal]
